FAERS Safety Report 12197753 (Version 1)
Quarter: 2016Q1

REPORT INFORMATION
  Report Type: Spontaneous
  Country: GB (occurrence: GB)
  Receive Date: 20160322
  Receipt Date: 20160322
  Transmission Date: 20160526
  Serious: Yes (Other)
  Sender: FDA-Public Use
  Company Number: GB-ACCORD-038919

PATIENT
  Age: 48 Year
  Sex: Male
  Weight: 116 kg

DRUGS (25)
  1. DIGOXIN. [Concomitant]
     Active Substance: DIGOXIN
  2. METFORMIN [Concomitant]
     Active Substance: METFORMIN HYDROCHLORIDE
  3. XARELTO [Concomitant]
     Active Substance: RIVAROXABAN
     Dosage: EACH NIGHT.
  4. THIAMINE. [Concomitant]
     Active Substance: THIAMINE
  5. FUROSEMIDE. [Concomitant]
     Active Substance: FUROSEMIDE
     Dosage: EACH MORNING.
  6. MORPHINE [Concomitant]
     Active Substance: MORPHINE
     Dosage: 2.5 - 5ML FOUR TIMES A DAY. AS NECESSARY
  7. PARACETAMOL [Concomitant]
     Active Substance: ACETAMINOPHEN
     Dosage: TAKE 1 OR 2 4 TIMES A DAY. AS NECESSARY
  8. PREDNISOLONE. [Concomitant]
     Active Substance: PREDNISOLONE
  9. ZINC [Concomitant]
     Active Substance: ZINC\ZINC CHLORIDE
     Dosage: APPLY, AS NECESSARY
  10. DERMOL [Concomitant]
     Active Substance: BENZALKONIUM CHLORIDE\CHLORHEXIDINE HYDROCHLORIDE\ISOPROPYL MYRISTATE\PARAFFIN
     Dosage: USE AS DIRECTED.
  11. TRAMADOL/TRAMADOL HYDROCHLORIDE [Suspect]
     Active Substance: TRAMADOL HYDROCHLORIDE
     Indication: PRODUCT USED FOR UNKNOWN INDICATION
     Dates: start: 2013
  12. CALCIPOTRIOL [Concomitant]
     Active Substance: CALCIPOTRIENE
     Dosage: APPLY.
  13. ZOMORPH [Concomitant]
     Active Substance: MORPHINE SULFATE
  14. CONOTRANE [Concomitant]
     Dosage: APPLY, AS NECESSARY
  15. FOLIC ACID. [Concomitant]
     Active Substance: FOLIC ACID
  16. PHOLCODINE [Concomitant]
     Active Substance: PHOLCODINE
  17. SITAGLIPTIN/SITAGLIPTIN PHOSPHATE [Concomitant]
     Dosage: EVERY MORNING.
  18. CLARITHROMYCIN/CLARITHROMYCIN LACTOBIONATE [Concomitant]
  19. GLICLAZIDE [Concomitant]
     Active Substance: GLICLAZIDE
  20. NUGEL [Concomitant]
     Dosage: APPLY TO BUTTOCKS, AS NECESSARY
  21. SENNA [Concomitant]
     Active Substance: SENNA LEAF\SENNOSIDES\SENNOSIDES A AND B
     Dosage: AT NIGHT, AS NECESSARY
  22. CALCEOS [Concomitant]
     Active Substance: CALCIUM CARBONATE\CHOLECALCIFEROL
  23. DOCUSATE [Concomitant]
     Active Substance: DOCUSATE
  24. DOXYCYCLINE. [Concomitant]
     Active Substance: DOXYCYCLINE
  25. OMEPRAZOLE. [Concomitant]
     Active Substance: OMEPRAZOLE
     Dosage: EVERY DAY.

REACTIONS (3)
  - Malaise [Unknown]
  - Rash [Unknown]
  - Joint swelling [Recovered/Resolved]

NARRATIVE: CASE EVENT DATE: 201503
